FAERS Safety Report 4965815-X (Version None)
Quarter: 2006Q2

REPORT INFORMATION
  Report Type: 
  Country: None (occurrence: None)
  Receive Date: 20060406
  Receipt Date: 20060406
  Transmission Date: 20061013
  Serious: No
  Sender: FDA-Public Use
  Company Number: None

PATIENT
  Age: 48 Year
  Sex: Female
  Weight: 102.0593 kg

DRUGS (2)
  1. AMBIEN [Suspect]
     Indication: INSOMNIA
     Dosage: 10MG 1 PER DAY ORAL
     Route: 048
     Dates: start: 20040923
  2. AMBIEN [Suspect]
     Indication: INSOMNIA
     Dosage: 10MG 1 PER DAY ORAL
     Route: 048
     Dates: start: 20060320

REACTIONS (3)
  - ABNORMAL SLEEP-RELATED EVENT [None]
  - AMNESIA [None]
  - WEIGHT INCREASED [None]
